FAERS Safety Report 16533416 (Version 1)
Quarter: 2019Q3

REPORT INFORMATION
  Report Type: Spontaneous
  Country: GR (occurrence: GR)
  Receive Date: 20190705
  Receipt Date: 20190705
  Transmission Date: 20191004
  Serious: Yes (Other)
  Sender: FDA-Public Use
  Company Number: GR-PFIZER INC-9182

PATIENT
  Age: 33 Year
  Sex: Female

DRUGS (5)
  1. EPIRUBICIN HCL [Suspect]
     Active Substance: EPIRUBICIN HYDROCHLORIDE
     Indication: BREAST CANCER METASTATIC
     Dosage: 90 MG/M2, CYCLIC (EVERY 3 WEEKS)
  2. ZOLEDRONIC ACID [Concomitant]
     Active Substance: ZOLEDRONIC ACID
     Dosage: UNK UNK, CYCLIC (EVERY 28 DAYS)
     Route: 042
  3. FLUOROURACIL. [Suspect]
     Active Substance: FLUOROURACIL
     Indication: BREAST CANCER METASTATIC
     Dosage: 600 MG/M2, CYCLIC (EVERY 3 WEEKS)
  4. CYCLOPHOSPHAMIDE. [Suspect]
     Active Substance: CYCLOPHOSPHAMIDE
     Indication: BREAST CANCER METASTATIC
     Dosage: 600 MG/M2, CYCLIC (EVERY 3 WEEKS)
  5. TAMOXIFEN [Concomitant]
     Active Substance: TAMOXIFEN
     Dosage: 20 MG, DAILY
     Route: 048

REACTIONS (6)
  - Premature delivery [Unknown]
  - Menopause [Unknown]
  - Maternal exposure during pregnancy [Unknown]
  - Nausea [Unknown]
  - Anaemia [Unknown]
  - Vomiting [Unknown]
